FAERS Safety Report 5775955-3 (Version None)
Quarter: 2008Q2

REPORT INFORMATION
  Report Type: 
  Country: None (occurrence: None)
  Receive Date: 20080601
  Receipt Date: 20080324
  Transmission Date: 20081010
  Serious: No
  Sender: FDA-Public Use
  Company Number: 2007PV029043

PATIENT
  Age: 49 Year
  Sex: Female

DRUGS (10)
  1. EXENATIDE(EXENATIDE) PEN, DISPOSABLE [Suspect]
     Indication: TYPE 2 DIABETES MELLITUS
     Dosage: SEE IMAGE
     Route: 058
     Dates: start: 20060401, end: 20061001
  2. EXENATIDE(EXENATIDE) PEN, DISPOSABLE [Suspect]
     Indication: TYPE 2 DIABETES MELLITUS
     Dosage: SEE IMAGE
     Route: 058
     Dates: start: 20061001, end: 20061101
  3. EXENATIDE(EXENATIDE) PEN, DISPOSABLE [Suspect]
     Indication: TYPE 2 DIABETES MELLITUS
     Dosage: SEE IMAGE
     Route: 058
     Dates: start: 20061101, end: 20070122
  4. EXENATIDE(EXENATIDE) PEN, DISPOSABLE [Suspect]
     Indication: TYPE 2 DIABETES MELLITUS
     Dosage: SEE IMAGE
     Route: 058
     Dates: start: 20080321
  5. EXENATIDE(EXENATIDE) PEN,DISPOSABLE [Suspect]
  6. EXENATIDE 5MCG PEN, DISPOSABLE DEVICE (EXENATIDE PEN (5MCG)) PEN,DISPO [Concomitant]
  7. GLUCOPHAGE [Concomitant]
  8. GLYBURIDE [Concomitant]
  9. PREVACID [Concomitant]
  10. METFORMIN HCL [Concomitant]

REACTIONS (12)
  - BLOOD GLUCOSE INCREASED [None]
  - BONE PAIN [None]
  - CONSTIPATION [None]
  - DECREASED APPETITE [None]
  - DYSGEUSIA [None]
  - MEDIAL TIBIAL STRESS SYNDROME [None]
  - MUSCLE INJURY [None]
  - NAUSEA [None]
  - TENDON PAIN [None]
  - TENDON RUPTURE [None]
  - VOMITING [None]
  - WEIGHT DECREASED [None]
